FAERS Safety Report 23629519 (Version 1)
Quarter: 2024Q1

REPORT INFORMATION
  Report Type: Other
  Country: IT (occurrence: IT)
  Receive Date: 20240314
  Receipt Date: 20240314
  Transmission Date: 20240410
  Serious: Yes (Death, Other)
  Sender: FDA-Public Use
  Company Number: IT-MACLEODS PHARMACEUTICALS US LTD-MAC2024046246

PATIENT

DRUGS (2)
  1. LEVOFLOXACIN [Suspect]
     Active Substance: LEVOFLOXACIN
     Indication: Antibiotic therapy
     Dosage: 1000 MILLIGRAM, QD (500 MG, 2X/DAY (EVERY 12 HOURS))
     Route: 065
  2. MEROPENEM [Suspect]
     Active Substance: MEROPENEM
     Indication: Antibiotic therapy
     Dosage: 3 GRAM, QD, 3 G, QD (1 G, 3X/DAY (EVERY 8 HOURS))
     Route: 065

REACTIONS (5)
  - Septic shock [Fatal]
  - Oxygen saturation decreased [Unknown]
  - Hypotension [Unknown]
  - Tachycardia [Unknown]
  - Medication error [Unknown]
